FAERS Safety Report 25161642 (Version 1)
Quarter: 2025Q2

REPORT INFORMATION
  Report Type: Spontaneous
  Country: US (occurrence: None)
  Receive Date: 20250402
  Receipt Date: 20250402
  Transmission Date: 20250717
  Serious: Yes (Death, Life-Threatening, Hospitalization, Other)
  Sender: FDA-CTU
  Company Number: None

PATIENT

DRUGS (2)
  1. LIDOCAINE [Suspect]
     Active Substance: LIDOCAINE
  2. DEVICE [Suspect]
     Active Substance: DEVICE

REACTIONS (4)
  - Device infusion issue [None]
  - Device delivery system issue [None]
  - Device information output issue [None]
  - Toxicity to various agents [None]
